FAERS Safety Report 11206297 (Version 1)
Quarter: 2015Q2

REPORT INFORMATION
  Report Type: Spontaneous
  Country: US (occurrence: US)
  Receive Date: 20150622
  Receipt Date: 20150622
  Transmission Date: 20150821
  Serious: No
  Sender: FDA-Public Use
  Company Number: US-HORIZON-BUP-0009-2015

PATIENT
  Age: 18 Year
  Sex: Female

DRUGS (3)
  1. BUPHENYL [Suspect]
     Active Substance: SODIUM PHENYLBUTYRATE
     Indication: UREA CYCLE ENZYME DEFICIENCY
  2. CITRULLINE [Concomitant]
     Active Substance: CITRULLINE
  3. SODIUM BENZOATE [Concomitant]
     Active Substance: SODIUM BENZOATE

REACTIONS (1)
  - Tonsillitis [Recovering/Resolving]
